FAERS Safety Report 7228813-1 (Version None)
Quarter: 2011Q1

REPORT INFORMATION
  Report Type: 
  Country: None (occurrence: None)
  Receive Date: 20110117
  Receipt Date: 20100222
  Transmission Date: 20110831
  Serious: No
  Sender: FDA-Public Use
  Company Number: 2010BI006181

PATIENT
  Age: 46 Year
  Sex: Female

DRUGS (2)
  1. TYSABRI [Suspect]
     Route: 042
     Dates: start: 20041101, end: 20050101
  2. TYSABRI [Suspect]
     Indication: MULTIPLE SCLEROSIS
     Route: 042
     Dates: start: 20070323, end: 20070605

REACTIONS (5)
  - OVARIAN INFECTION [None]
  - UTERINE INFECTION [None]
  - CERVICITIS [None]
  - ESCHERICHIA INFECTION [None]
  - STREPTOCOCCAL INFECTION [None]
